FAERS Safety Report 15636394 (Version 1)
Quarter: 2018Q4

REPORT INFORMATION
  Report Type: Spontaneous
  Country: US (occurrence: US)
  Receive Date: 20181120
  Receipt Date: 20181120
  Transmission Date: 20190205
  Serious: No
  Sender: FDA-Public Use
  Company Number: US-BIOGEN-2017BI00430858

PATIENT
  Age: 46 Year
  Sex: Female

DRUGS (1)
  1. TYSABRI [Suspect]
     Active Substance: NATALIZUMAB
     Indication: MULTIPLE SCLEROSIS
     Dosage: INFUSED OVER 1 HOUR
     Route: 042
     Dates: start: 20121130

REACTIONS (3)
  - Herpes zoster [Recovered/Resolved]
  - Malaise [Recovered/Resolved]
  - Fungal infection [Recovered/Resolved]

NARRATIVE: CASE EVENT DATE: 201706
